FAERS Safety Report 10739893 (Version 1)
Quarter: 2015Q1

REPORT INFORMATION
  Report Type: Spontaneous
  Country: US (occurrence: US)
  Receive Date: 20150127
  Receipt Date: 20150127
  Transmission Date: 20150721
  Serious: Yes (Life-Threatening)
  Sender: FDA-Public Use
  Company Number: US-JNJFOC-20150111261

PATIENT
  Age: 31 Year
  Sex: Female

DRUGS (1)
  1. TYLENOL EXTRA STRENGTH [Suspect]
     Active Substance: ACETAMINOPHEN
     Indication: ABDOMINAL PAIN
     Route: 048
     Dates: start: 20070827

REACTIONS (11)
  - Transaminases increased [Unknown]
  - Lethargy [Unknown]
  - Nausea [Unknown]
  - Abdominal pain [Unknown]
  - Overdose [Unknown]
  - Laboratory test abnormal [Unknown]
  - Cytopenia [Unknown]
  - Suicide attempt [Unknown]
  - Vomiting [Unknown]
  - Hyperthermia [Unknown]
  - Prothrombin time prolonged [Unknown]
